FAERS Safety Report 9908313 (Version 1)
Quarter: 2014Q1

REPORT INFORMATION
  Report Type: Spontaneous
  Country: GB (occurrence: GB)
  Receive Date: 20140219
  Receipt Date: 20140219
  Transmission Date: 20141002
  Serious: Yes (Hospitalization)
  Sender: FDA-Public Use
  Company Number: GB-PERRIGO-14GB001667

PATIENT
  Age: 72 Year
  Sex: Female

DRUGS (1)
  1. IBUPROFEN 16028/0027 200 MG [Suspect]
     Indication: BACK PAIN
     Dosage: UNK
     Route: 065

REACTIONS (9)
  - Subcutaneous emphysema [Unknown]
  - Anaphylactic reaction [Unknown]
  - Dyspnoea [Unknown]
  - Swelling face [Unknown]
  - Tachypnoea [Unknown]
  - Oxygen saturation immeasurable [Unknown]
  - Contusion [Unknown]
  - Pneumomediastinum [Unknown]
  - Pneumothorax [Unknown]
